FAERS Safety Report 8549945-1 (Version None)
Quarter: 2012Q3

REPORT INFORMATION
  Report Type: 
  Country: None (occurrence: None)
  Receive Date: 20120730
  Receipt Date: 20120724
  Transmission Date: 20120928
  Serious: Yes (Death)
  Sender: FDA-Public Use
  Company Number: US-CELGENEUS-163-21880-12072808

PATIENT
  Sex: Male

DRUGS (10)
  1. ACYCLOVIR [Concomitant]
     Route: 065
  2. ASPIRIN [Concomitant]
     Route: 065
  3. DEXAMETHASONE [Concomitant]
     Route: 065
  4. VITAMIN D [Concomitant]
     Route: 065
  5. LABETALOL HCL [Concomitant]
     Route: 065
  6. DOXIL [Concomitant]
     Route: 065
  7. ALPHA LIPOIC ACID [Concomitant]
     Route: 065
  8. REVLIMID [Suspect]
     Indication: MULTIPLE MYELOMA
     Dosage: 10 MILLIGRAM
     Route: 048
     Dates: start: 20120101
  9. VELCADE [Concomitant]
     Route: 065
  10. CRESTOR [Concomitant]
     Route: 065

REACTIONS (1)
  - DEATH [None]
